FAERS Safety Report 11267492 (Version 1)
Quarter: 2015Q3

REPORT INFORMATION
  Report Type: Spontaneous
  Country: IT (occurrence: IT)
  Receive Date: 20150713
  Receipt Date: 20150713
  Transmission Date: 20151125
  Serious: Yes (Hospitalization)
  Sender: FDA-Public Use
  Company Number: IT-ELI_LILLY_AND_COMPANY-IT201507000625

PATIENT
  Age: 85 Year
  Sex: Female

DRUGS (12)
  1. LASITONE [Concomitant]
     Active Substance: FUROSEMIDE\SPIRONOLACTONE
     Indication: CARDIAC FAILURE
     Dosage: 2 DF, UNKNOWN
     Route: 048
  2. LUVION                             /00839101/ [Concomitant]
     Active Substance: CANRENONE
     Indication: CARDIAC FAILURE
     Dosage: 50 MG, UNKNOWN
     Route: 048
  3. CARDIOASPIRIN [Concomitant]
     Active Substance: ASPIRIN
     Indication: AORTIC VALVE STENOSIS
     Dosage: 100 MG, UNK
     Route: 048
  4. EUTIROX [Concomitant]
     Active Substance: LEVOTHYROXINE SODIUM
     Dosage: 50 UG, UNKNOWN
  5. OMEPRAZOLE. [Concomitant]
     Active Substance: OMEPRAZOLE
     Indication: PEPTIC ULCER
     Dosage: 40 MG, UNKNOWN
     Route: 048
  6. ALLOPURINOL. [Concomitant]
     Active Substance: ALLOPURINOL
     Indication: GOUT
     Dosage: 100 MG, UNKNOWN
     Route: 048
  7. PLAVIX [Concomitant]
     Active Substance: CLOPIDOGREL BISULFATE
     Indication: CARDIAC FAILURE
     Dosage: 75 MG, UNKNOWN
     Route: 048
  8. HUMALOG [Suspect]
     Active Substance: INSULIN LISPRO
     Indication: TYPE 1 DIABETES MELLITUS
     Dosage: 27 IU, QD
     Route: 058
  9. BISOPROLOL HEMIFUMARATE [Concomitant]
     Active Substance: BISOPROLOL FUMARATE
     Indication: CARDIAC FAILURE
     Dosage: 2.5 MG, UNKNOWN
     Route: 048
  10. ATORVASTATIN ACTAVIS               /01326108/ [Concomitant]
     Indication: CARDIOVASCULAR EVENT PROPHYLAXIS
     Dosage: 10 MG, UNKNOWN
     Route: 048
  11. EUTIROX [Concomitant]
     Active Substance: LEVOTHYROXINE SODIUM
     Indication: THYROIDECTOMY
     Dosage: 25 UG, UNKNOWN
     Route: 048
  12. LANTUS [Suspect]
     Active Substance: INSULIN GLARGINE
     Indication: TYPE 1 DIABETES MELLITUS
     Dosage: 7 IU, QD
     Route: 058

REACTIONS (2)
  - Extra dose administered [Recovering/Resolving]
  - Hypoglycaemic coma [Recovering/Resolving]

NARRATIVE: CASE EVENT DATE: 20150205
